FAERS Safety Report 5840590-5 (Version None)
Quarter: 2008Q3

REPORT INFORMATION
  Report Type: 
  Country: None (occurrence: None)
  Receive Date: 20080811
  Receipt Date: 20080730
  Transmission Date: 20090109
  Serious: Yes (Other)
  Sender: FDA-Public Use
  Company Number: GB-ELI_LILLY_AND_COMPANY-GB200803006127

PATIENT
  Sex: Male
  Weight: 50.5 kg

DRUGS (3)
  1. STRATTERA [Suspect]
     Indication: ATTENTION DEFICIT/HYPERACTIVITY DISORDER
     Dosage: 40 MG, DAILY (1/D)
     Route: 048
     Dates: start: 20050101, end: 20061101
  2. STRATTERA [Suspect]
     Dosage: 60 MG, DAILY (1/D)
     Route: 048
     Dates: start: 20061101, end: 20071201
  3. RITALIN [Concomitant]
     Dosage: 5 MG, UNKNOWN
     Route: 048
     Dates: start: 20070301

REACTIONS (5)
  - AGGRESSION [None]
  - ANGER [None]
  - IRRITABILITY [None]
  - NEGATIVE THOUGHTS [None]
  - SUICIDAL IDEATION [None]
